FAERS Safety Report 6998907-4 (Version None)
Quarter: 2010Q3

REPORT INFORMATION
  Report Type: 
  Country: None (occurrence: None)
  Receive Date: 20100920
  Receipt Date: 20080109
  Transmission Date: 20110219
  Serious: Yes (Other)
  Sender: FDA-Public Use
  Company Number: US-ASTRAZENECA-2007UW03775

PATIENT
  Age: 33 Year
  Sex: Female
  Weight: 70.8 kg

DRUGS (9)
  1. SEROQUEL [Suspect]
     Indication: DEPRESSION
     Route: 048
     Dates: start: 20020227
  2. SEROQUEL [Suspect]
     Route: 048
     Dates: start: 20030823, end: 20041001
  3. MOTRIN [Concomitant]
     Indication: PAIN
     Dosage: 800
     Route: 048
     Dates: start: 20050409
  4. NAPROSYN [Concomitant]
     Dates: start: 20021221
  5. LORTAB [Concomitant]
     Dates: start: 20021221
  6. BENTYL [Concomitant]
     Route: 048
     Dates: start: 19990819
  7. LODIN [Concomitant]
     Indication: PAIN
     Route: 048
     Dates: start: 19970622
  8. PAXIL [Concomitant]
     Dates: start: 20010228
  9. TRAZODONE HCL [Concomitant]
     Dates: start: 20020104

REACTIONS (2)
  - GASTROINTESTINAL DISORDER [None]
  - PANCREATITIS [None]
